FAERS Safety Report 20057676 (Version 3)
Quarter: 2022Q2

REPORT INFORMATION
  Report Type: Spontaneous
  Country: US (occurrence: US)
  Receive Date: 20211111
  Receipt Date: 20220602
  Transmission Date: 20220720
  Serious: Yes (Death, Hospitalization, Other)
  Sender: FDA-Public Use
  Company Number: US-ADC THERAPEUTICS-ADC-2021-000154

PATIENT
  Age: 68 Year
  Sex: Male

DRUGS (2)
  1. ZYNLONTA [Suspect]
     Active Substance: LONCASTUXIMAB TESIRINE-LPYL
     Indication: Diffuse large B-cell lymphoma
     Dosage: UNK UNK, Q3WK
     Dates: end: 20210930
  2. ALLOPURINOL [Concomitant]
     Active Substance: ALLOPURINOL
     Indication: Product used for unknown indication
     Dosage: UNK

REACTIONS (10)
  - Skin ulcer [Recovering/Resolving]
  - Enterococcal infection [Recovering/Resolving]
  - Klebsiella infection [Recovering/Resolving]
  - Pseudomonas infection [Recovering/Resolving]
  - Blister [Recovering/Resolving]
  - Renal failure [Unknown]
  - Diffuse large B-cell lymphoma [Fatal]
  - Rash vesicular [Recovering/Resolving]
  - Oedema peripheral [Recovering/Resolving]
  - Photosensitivity reaction [Recovering/Resolving]
